FAERS Safety Report 18881788 (Version 1)
Quarter: 2021Q1

REPORT INFORMATION
  Report Type: Spontaneous
  Country: JP (occurrence: JP)
  Receive Date: 20210212
  Receipt Date: 20210212
  Transmission Date: 20210420
  Serious: Yes (Other)
  Sender: FDA-Public Use
  Company Number: JP-TEVA-2021-JP-000483J

PATIENT
  Age: 70 Year
  Sex: Female

DRUGS (4)
  1. ALOSENN [Concomitant]
     Route: 065
     Dates: start: 20120809
  2. CELESTAMINE [Concomitant]
     Active Substance: BETAMETHASONE\DEXCHLORPHENIRAMINE MALEATE
     Route: 065
     Dates: start: 20200330
  3. PRAVASTATIN NA TABLET 10MG ^TEVA^ [Suspect]
     Active Substance: PRAVASTATIN SODIUM
     Indication: HYPERCHOLESTEROLAEMIA
     Route: 048
     Dates: start: 20200905, end: 20201020
  4. NIFEDIPINE L [Concomitant]
     Active Substance: NIFEDIPINE
     Route: 065
     Dates: start: 20200708

REACTIONS (2)
  - Gait inability [Recovered/Resolved]
  - Muscle spasms [Recovered/Resolved]

NARRATIVE: CASE EVENT DATE: 20200905
